FAERS Safety Report 14596446 (Version 1)
Quarter: 2018Q1

REPORT INFORMATION
  Report Type: Spontaneous
  Country: JP (occurrence: JP)
  Receive Date: 20180303
  Receipt Date: 20180303
  Transmission Date: 20180509
  Serious: Yes (Death, Other)
  Sender: FDA-Public Use
  Company Number: PHJP2018JP002404

PATIENT
  Age: 73 Year
  Sex: Male

DRUGS (1)
  1. VOTRIENT [Suspect]
     Active Substance: PAZOPANIB HYDROCHLORIDE
     Indication: RENAL CELL CARCINOMA
     Dosage: 600 MG, (DAILY DOSE) UNK
     Route: 048
     Dates: start: 20180109, end: 20180119

REACTIONS (6)
  - Myocardial infarction [Unknown]
  - Concomitant disease progression [Unknown]
  - Pulmonary embolism [Unknown]
  - Decreased appetite [Unknown]
  - Disseminated intravascular coagulation [Unknown]
  - Deep vein thrombosis [Fatal]

NARRATIVE: CASE EVENT DATE: 20180118
